FAERS Safety Report 12729962 (Version 8)
Quarter: 2017Q1

REPORT INFORMATION
  Report Type: Report from Study
  Country: CA (occurrence: CA)
  Receive Date: 20160909
  Receipt Date: 20170320
  Transmission Date: 20170428
  Serious: Yes (Hospitalization, Other)
  Sender: FDA-Public Use
  Company Number: CA-TAKEDA-2016TUS012899

PATIENT
  Age: 54 Year
  Sex: Female

DRUGS (7)
  1. CLONAZEPAM. [Concomitant]
     Active Substance: CLONAZEPAM
     Dosage: UNK
  2. IMURAN [Concomitant]
     Active Substance: AZATHIOPRINE
     Dosage: UNK
     Dates: start: 20160602
  3. VEDOLIZUMAB [Suspect]
     Active Substance: VEDOLIZUMAB
     Indication: CROHN^S DISEASE
     Dosage: 300 MG, UNK
     Route: 042
     Dates: start: 20160706, end: 20160819
  4. BISPROLOL [Concomitant]
     Active Substance: BISOPROLOL
     Dosage: UNK
  5. LOSEC [Concomitant]
     Active Substance: OMEPRAZOLE
     Indication: ULCER
     Dosage: UNK
  6. VEDOLIZUMAB [Suspect]
     Active Substance: VEDOLIZUMAB
     Dosage: 300 MG, UNK
     Route: 042
     Dates: start: 20170308
  7. DILAUDID [Concomitant]
     Active Substance: HYDROMORPHONE HYDROCHLORIDE
     Dosage: UNK

REACTIONS (18)
  - Crohn^s disease [Unknown]
  - Oral candidiasis [Unknown]
  - Decreased appetite [Not Recovered/Not Resolved]
  - Weight decreased [Unknown]
  - Obstruction [Not Recovered/Not Resolved]
  - Pain [Unknown]
  - Malaise [Unknown]
  - Wound [Unknown]
  - Diarrhoea [Not Recovered/Not Resolved]
  - Presyncope [Unknown]
  - Fistula [Unknown]
  - Drug ineffective [Unknown]
  - Anaemia [Unknown]
  - Vomiting [Not Recovered/Not Resolved]
  - Wound infection [Unknown]
  - Intestinal stenosis [Unknown]
  - Stomatitis [Unknown]
  - Nasopharyngitis [Unknown]

NARRATIVE: CASE EVENT DATE: 2016
